FAERS Safety Report 7239412-X (Version None)
Quarter: 2011Q1

REPORT INFORMATION
  Report Type: 
  Country: None (occurrence: None)
  Receive Date: 20110121
  Receipt Date: 20110117
  Transmission Date: 20110831
  Serious: Yes (Hospitalization, Other)
  Sender: FDA-Public Use
  Company Number: US-ABBOTT-10P-163-0691047-00

PATIENT
  Sex: Male
  Weight: 93.07 kg

DRUGS (2)
  1. MULTIVITAMIN [Concomitant]
     Indication: VITAMIN SUPPLEMENTATION
  2. HUMIRA [Suspect]
     Indication: CROHN'S DISEASE
     Dates: start: 20100831, end: 20101101

REACTIONS (9)
  - INFLAMMATORY BOWEL DISEASE [None]
  - ABDOMINAL PAIN [None]
  - ILL-DEFINED DISORDER [None]
  - DRUG INEFFECTIVE [None]
  - CROHN'S DISEASE [None]
  - PYREXIA [None]
  - ABSCESS [None]
  - TENDERNESS [None]
  - LARGE INTESTINAL ULCER [None]
